FAERS Safety Report 13454906 (Version 2)
Quarter: 2019Q3

REPORT INFORMATION
  Report Type: Spontaneous
  Country: US (occurrence: US)
  Receive Date: 20170418
  Receipt Date: 20190829
  Transmission Date: 20191004
  Serious: Yes (Other)
  Sender: FDA-Public Use
  Company Number: US-PFIZER INC-2017164291

PATIENT
  Age: 63 Year
  Sex: Male

DRUGS (2)
  1. XELJANZ XR [Suspect]
     Active Substance: TOFACITINIB CITRATE
     Indication: RHEUMATOID ARTHRITIS
     Dosage: 11 MG, DAILY
     Dates: start: 20161117
  2. XELJANZ XR [Suspect]
     Active Substance: TOFACITINIB CITRATE
     Dosage: 11 MG, CYCLIC, EVERY OTHER WEEK

REACTIONS (8)
  - Ear infection [Unknown]
  - Cellulitis [Unknown]
  - Condition aggravated [Unknown]
  - Salivary gland disorder [Unknown]
  - Sinusitis [Unknown]
  - Intentional product misuse [Unknown]
  - Skin cancer [Unknown]
  - Taste disorder [Unknown]
